FAERS Safety Report 20698991 (Version 5)
Quarter: 2022Q4

REPORT INFORMATION
  Report Type: Report from Study
  Country: US (occurrence: US)
  Receive Date: 20220412
  Receipt Date: 20221006
  Transmission Date: 20230112
  Serious: Yes (Other)
  Sender: FDA-Public Use
  Company Number: US-BRISTOL-MYERS SQUIBB COMPANY-2022-016227

PATIENT
  Age: 63 Year
  Sex: Male
  Weight: 95.25 kg

DRUGS (11)
  1. REVLIMID [Suspect]
     Active Substance: LENALIDOMIDE
     Indication: Plasma cell myeloma
     Dosage: FREQ: ONCE DAILY- DAYS 1-21 OF 28 DAY CYCLE
     Route: 048
     Dates: start: 202007
  2. REVLIMID [Suspect]
     Active Substance: LENALIDOMIDE
     Dosage: FREQUENCY 21 OUT OF 28 DAYS
     Route: 048
     Dates: start: 202007
  3. REVLIMID [Suspect]
     Active Substance: LENALIDOMIDE
     Dosage: AT BEDTIME ON DAY 1-21 DAYS
     Route: 048
     Dates: start: 202007
  4. REVLIMID [Suspect]
     Active Substance: LENALIDOMIDE
     Dosage: AT BEDTIME ON DAY 1-21 DAYS
     Route: 048
     Dates: start: 20210915
  5. DEXAMETHASONE [Concomitant]
     Active Substance: DEXAMETHASONE
     Indication: Product used for unknown indication
     Route: 065
  6. COMPAZINE [Concomitant]
     Active Substance: PROCHLORPERAZINE MALEATE
     Indication: Product used for unknown indication
     Route: 065
  7. OXYCONTIN [Concomitant]
     Active Substance: OXYCODONE HYDROCHLORIDE
     Indication: Product used for unknown indication
     Route: 065
  8. PRAMIPEXOLE [Concomitant]
     Active Substance: PRAMIPEXOLE
     Indication: Product used for unknown indication
     Route: 065
  9. VITAMIN D3 [Concomitant]
     Active Substance: CHOLECALCIFEROL
     Indication: Product used for unknown indication
     Route: 065
  10. ZOFRAN [Concomitant]
     Active Substance: ONDANSETRON HYDROCHLORIDE
     Indication: Product used for unknown indication
     Route: 065
  11. ASPIRIN [Concomitant]
     Active Substance: ASPIRIN
     Indication: Product used for unknown indication
     Route: 065

REACTIONS (6)
  - Blood pressure decreased [Unknown]
  - Ligament sprain [Unknown]
  - Parkinson^s disease [Unknown]
  - Thermal burn [Unknown]
  - Neuropathy peripheral [Unknown]
  - Fungal infection [Unknown]
